FAERS Safety Report 4994436-8 (Version None)
Quarter: 2006Q2

REPORT INFORMATION
  Report Type: 
  Country: None (occurrence: None)
  Receive Date: 20060505
  Receipt Date: 20060315
  Transmission Date: 20061013
  Serious: Yes (Other)
  Sender: FDA-Public Use
  Company Number: PT-AMGEN-UK172641

PATIENT
  Sex: Female
  Weight: 128 kg

DRUGS (8)
  1. PALIFERMIN [Suspect]
     Indication: MUCOSAL INFLAMMATION
     Route: 042
     Dates: start: 20060107
  2. ACYCLOVIR [Suspect]
     Route: 042
     Dates: start: 20060112, end: 20060119
  3. MELPHALAN [Suspect]
     Route: 042
     Dates: start: 20060115, end: 20060115
  4. ETOPOSIDE [Concomitant]
     Route: 042
     Dates: start: 20060111, end: 20060114
  5. CYTARABINE [Concomitant]
     Route: 042
     Dates: start: 20060111, end: 20060114
  6. BCNU [Concomitant]
     Route: 042
     Dates: start: 20060110, end: 20060110
  7. ONDANSETRON [Concomitant]
     Route: 042
     Dates: start: 20060110, end: 20060116
  8. ITRACONAZOLE [Concomitant]
     Route: 048
     Dates: start: 20060112, end: 20060122

REACTIONS (3)
  - RASH GENERALISED [None]
  - RENAL FAILURE [None]
  - SKIN OEDEMA [None]
